FAERS Safety Report 10242221 (Version 1)
Quarter: 2014Q2

REPORT INFORMATION
  Report Type: Spontaneous
  Country: DK (occurrence: DK)
  Receive Date: 20140617
  Receipt Date: 20140617
  Transmission Date: 20141212
  Serious: Yes (Hospitalization)
  Sender: FDA-Public Use
  Company Number: DK-B.I. PHARMACEUTICALS,INC./RIDGEFIELD-2014-BI-26584DB

PATIENT
  Age: 76 Year
  Sex: Female

DRUGS (10)
  1. PRADAXA [Suspect]
     Indication: THROMBOSIS PROPHYLAXIS
     Dosage: 150 MG
     Route: 048
     Dates: start: 20140519, end: 20140528
  2. DIGOXIN ^DAK^ [Concomitant]
     Indication: ARRHYTHMIA
     Route: 065
  3. FURIX [Concomitant]
     Indication: HYPERTENSION
     Route: 065
  4. KALEORID [Concomitant]
     Indication: MINERAL SUPPLEMENTATION
     Route: 065
  5. LAXOBERAL [Concomitant]
     Indication: CONSTIPATION
     Route: 065
  6. MEDILAX [Concomitant]
     Indication: CONSTIPATION
     Route: 065
  7. METOPROLOLSUCCINAT ^ORION^ [Concomitant]
     Indication: CARDIAC DISORDER
     Route: 065
  8. PINEX [Concomitant]
     Indication: PAIN
     Route: 065
  9. RISPERDAL [Concomitant]
     Indication: MENTAL DISORDER
     Route: 065
  10. STILNOCT [Concomitant]
     Indication: INSOMNIA
     Route: 065

REACTIONS (3)
  - Liver disorder [Not Recovered/Not Resolved]
  - Renal impairment [Unknown]
  - Alanine aminotransferase increased [Not Recovered/Not Resolved]
